FAERS Safety Report 5846345-X (Version None)
Quarter: 2008Q3

REPORT INFORMATION
  Report Type: 
  Country: None (occurrence: None)
  Receive Date: 20080815
  Receipt Date: 20080807
  Transmission Date: 20090109
  Serious: Yes (Other)
  Sender: FDA-Public Use
  Company Number: GB-JNJFOC-20080802382

PATIENT
  Age: 18 Year
  Sex: Male

DRUGS (3)
  1. ACETAMINOPHEN [Suspect]
  2. ACETAMINOPHEN [Suspect]
     Indication: DRUG USE FOR UNKNOWN INDICATION
     Dosage: ALLEGED MAXIMUM DOSE OF 2000 MG DAILY
  3. UNSPECIFIED MEDICATIONS [Suspect]
     Indication: DRUG USE FOR UNKNOWN INDICATION

REACTIONS (2)
  - LIVER INJURY [None]
  - RENAL FAILURE ACUTE [None]
